FAERS Safety Report 19501002 (Version 4)
Quarter: 2021Q3

REPORT INFORMATION
  Report Type: Report from Study
  Country: PL (occurrence: PL)
  Receive Date: 20210707
  Receipt Date: 20210908
  Transmission Date: 20211014
  Serious: Yes (Death, Life-Threatening, Hospitalization)
  Sender: FDA-Public Use
  Company Number: PL-ROCHE-2825468

PATIENT
  Age: 70 Year
  Sex: Female
  Weight: 71 kg

DRUGS (11)
  1. CITABAX [Concomitant]
     Active Substance: CITALOPRAM HYDROBROMIDE
     Indication: NEUROSIS
     Dates: start: 2019
  2. BETASERC [Concomitant]
     Active Substance: BETAHISTINE
     Indication: VERTIGO
     Dates: start: 1981
  3. KALIPOZ [Concomitant]
     Active Substance: POTASSIUM CHLORIDE
     Route: 048
     Dates: start: 20210521
  4. TIRAGOLUMAB. [Suspect]
     Active Substance: TIRAGOLUMAB
     Indication: NON-SMALL CELL LUNG CANCER
     Dosage: IV INFUSION Q3W ON DAY 1 OF EACH 21?DAY CYCLE (AS PER PROTOCOL)?START DATE OF MOST RECENT DOSE OF S
     Route: 042
     Dates: start: 20210430
  5. NILOGRIN [Concomitant]
     Indication: VERTIGO
     Dates: start: 2020
  6. NASEN [Concomitant]
     Indication: NEUROSIS
     Dates: start: 2019
  7. DOBROSON [Concomitant]
     Indication: INSOMNIA
     Dates: start: 20210525, end: 20210602
  8. ATEZOLIZUMAB. [Suspect]
     Active Substance: ATEZOLIZUMAB
     Indication: NON-SMALL CELL LUNG CANCER
     Dosage: ATEZOLIZUMAB 1200 MILLIGRAMS (MG) ADMINISTERED BY INTRAVENOUS (IV) INFUSION Q3W ON DAY 1 OF EACH 21?
     Route: 041
     Dates: start: 20210430
  9. SYMPRAMOL [Concomitant]
     Indication: NEUROSIS
     Dates: start: 2020
  10. IPP (POLAND) [Concomitant]
     Indication: ULCER
     Route: 048
     Dates: start: 20210521
  11. CLEXANE [Concomitant]
     Active Substance: ENOXAPARIN SODIUM
     Route: 058
     Dates: start: 20210521, end: 20210601

REACTIONS (2)
  - Cardiac tamponade [Recovered/Resolved]
  - Chills [Recovered/Resolved]

NARRATIVE: CASE EVENT DATE: 20210430
